FAERS Safety Report 8784700 (Version 2)
Quarter: 2012Q4

REPORT INFORMATION
  Report Type: 
  Country: JP (occurrence: JP)
  Receive Date: 20120914
  Receipt Date: 20121123
  Transmission Date: 20130627
  Serious: Yes (Life-Threatening)
  Sender: FDA-Public Use
  Company Number: JP-PFIZER INC-2012223458

PATIENT
  Age: 82 Year
  Sex: Female
  Weight: 58 kg

DRUGS (2)
  1. UNASYN-S [Suspect]
     Indication: PNEUMONIA
     Dosage: 3 g, 2x/day
     Route: 042
     Dates: start: 20120722, end: 20120727
  2. CLARITH [Concomitant]
     Indication: PNEUMONIA
     Dosage: 2 tablets daily
     Route: 048
     Dates: start: 20120723, end: 20120727

REACTIONS (1)
  - Stevens-Johnson syndrome [Recovered/Resolved]
